FAERS Safety Report 7300454-7 (Version None)
Quarter: 2011Q1

REPORT INFORMATION
  Report Type: 
  Country: None (occurrence: None)
  Receive Date: 20110217
  Receipt Date: 20110202
  Transmission Date: 20110831
  Serious: Yes (Death, Hospitalization)
  Sender: FDA-Public Use
  Company Number: PHHY2011FR02468

PATIENT
  Age: 1 Year
  Sex: Male

DRUGS (31)
  1. SIMULECT [Suspect]
     Indication: RENAL TRANSPLANT
     Dosage: 20 MG, ONCE/SINGLE
     Route: 042
     Dates: start: 20101223
  2. ALBUMIN (HUMAN) [Concomitant]
     Dosage: 40 MG/ML
     Route: 042
     Dates: start: 20101223, end: 20101224
  3. OXYGEN THERAPY [Concomitant]
  4. SUFENTA PRESERVATIVE FREE [Concomitant]
     Dosage: 5 UG, UNK
     Dates: start: 20101223
  5. ADRENALINE [Concomitant]
     Dosage: 200 UG, UNK
     Route: 042
     Dates: start: 20101223
  6. ALBUMIN (HUMAN) [Concomitant]
     Dosage: UNK
     Dates: start: 20101224
  7. HYPNOVEL [Concomitant]
     Dosage: 5 MG/ML
     Dates: start: 20101223
  8. RED BLOOD CELLS [Concomitant]
     Dosage: 200 ML, UNK
  9. COROTROPE [Concomitant]
     Dosage: 0.4 MCG/KG/MIN
     Dates: start: 20101224
  10. TRACRIUM [Concomitant]
     Dosage: 5 MG, UNK
     Dates: start: 20101223
  11. SEVOFLURANE [Concomitant]
     Dosage: UNK
     Dates: start: 20101223
  12. ATROPINE [Concomitant]
     Dosage: 200 UG, UNK
     Dates: start: 20101223
  13. SIMULECT [Suspect]
     Dosage: 10 MG, UNK
     Route: 042
  14. NORADRENALINE [Concomitant]
     Dosage: 2 MG, UNK
     Dates: start: 20101223, end: 20101224
  15. ATARAX [Concomitant]
     Dosage: 5 MG, UNK
  16. MORPHINE [Concomitant]
     Dosage: 31 MCG/KG/H
     Dates: start: 20101223
  17. KETAMINE [Concomitant]
     Dosage: 20 MG, UNK
     Dates: start: 20101224
  18. CELLCEPT [Concomitant]
     Dosage: 280 MG, UNK
     Dates: start: 20101223, end: 20101224
  19. VENTOLIN [Concomitant]
     Dosage: UNK
     Dates: start: 20101223
  20. NEXIUM [Concomitant]
     Dosage: UNK
     Dates: start: 20101223
  21. BICARBONATE [Concomitant]
  22. SOLU-MEDROL [Concomitant]
     Dosage: 140 MG, UNK
     Dates: start: 20101223
  23. BACTRIM [Concomitant]
     Dosage: UNK
     Dates: start: 20101223
  24. PERFALGAN [Concomitant]
     Dosage: 200 MG, UNK
     Route: 042
     Dates: start: 20101223, end: 20101224
  25. ROCEPHIN [Concomitant]
     Dosage: 500 M, UNK
     Route: 030
     Dates: start: 20101223
  26. LASIX [Concomitant]
     Dosage: 10 MG, BID
     Dates: start: 20101223
  27. HYPNOVEL [Concomitant]
     Dosage: 200 MCG/KG/H
  28. METRONIDAZOLE [Concomitant]
     Dosage: 30 MG/KG/DAY
  29. CORDARONE [Concomitant]
  30. CALCIPARINE [Concomitant]
  31. FLAGYL [Concomitant]
     Dosage: UNK
     Dates: start: 20101224

REACTIONS (22)
  - BRONCHOSPASM [None]
  - LEFT VENTRICULAR DYSFUNCTION [None]
  - EJECTION FRACTION ABNORMAL [None]
  - BRADYCARDIA [None]
  - PYREXIA [None]
  - CARDIOPULMONARY FAILURE [None]
  - OXYGEN SATURATION ABNORMAL [None]
  - ELECTROCARDIOGRAM QRS COMPLEX PROLONGED [None]
  - HYPOXIA [None]
  - HAEMOGLOBIN DECREASED [None]
  - BRONCHOPNEUMOPATHY [None]
  - NEUTROPHIL COUNT INCREASED [None]
  - RESTLESSNESS [None]
  - AGITATION [None]
  - ACUTE PULMONARY OEDEMA [None]
  - SPLENOMEGALY [None]
  - ALVEOLITIS [None]
  - GASTROINTESTINAL HAEMORRHAGE [None]
  - TACHYPNOEA [None]
  - SECRETION DISCHARGE [None]
  - HAEMODYNAMIC INSTABILITY [None]
  - PLEURAL EFFUSION [None]
